FAERS Safety Report 8772034 (Version 1)
Quarter: 2012Q4

REPORT INFORMATION
  Report Type: 
  Country: AR (occurrence: AR)
  Receive Date: 20120905
  Receipt Date: 20120905
  Transmission Date: 20130627
  Serious: Yes (Hospitalization)
  Sender: FDA-Public Use
  Company Number: PHHY2012AR076264

PATIENT
  Sex: Female

DRUGS (1)
  1. DIOVAN [Suspect]
     Indication: BLOOD PRESSURE INCREASED
     Dosage: UNK
     Dates: start: 201208

REACTIONS (4)
  - Pneumonia [Recovering/Resolving]
  - Hypotension [Recovering/Resolving]
  - Urinary tract infection [Recovering/Resolving]
  - General physical condition abnormal [Recovering/Resolving]
